FAERS Safety Report 4826092-3 (Version None)
Quarter: 2005Q4

REPORT INFORMATION
  Report Type: 
  Country: None (occurrence: None)
  Receive Date: 20051110
  Receipt Date: 20051110
  Transmission Date: 20060501
  Serious: Yes (Hospitalization, Other)
  Sender: FDA-Public Use
  Company Number: None

PATIENT
  Sex: Male
  Weight: 72.72 kg

DRUGS (4)
  1. FLUOROURACIL [Suspect]
     Indication: OESOPHAGEAL CARCINOMA
     Dosage: SEE IMAGE
     Dates: start: 20050606, end: 20050610
  2. CISPLATIN [Suspect]
     Dosage: SEE IMAGE
     Dates: start: 20050506, end: 20050513
  3. CISPLATIN [Suspect]
     Dosage: SEE IMAGE
     Dates: start: 20050606
  4. RADIATION [Suspect]
     Dosage: SEE IMAGE
     Dates: start: 20050606

REACTIONS (3)
  - PLEURAL EFFUSION [None]
  - PYREXIA [None]
  - WHITE BLOOD CELL COUNT INCREASED [None]
